FAERS Safety Report 13393787 (Version 1)
Quarter: 2017Q1

REPORT INFORMATION
  Report Type: Report from Study
  Country: ES (occurrence: ES)
  Receive Date: 20170331
  Receipt Date: 20170331
  Transmission Date: 20170429
  Serious: Yes (Death, Hospitalization)
  Sender: FDA-Public Use
  Company Number: ES-CELGENEUS-ESP-2017033574

PATIENT
  Age: 59 Year
  Sex: Female
  Weight: 37.5 kg

DRUGS (5)
  1. DEXAMETHASONE ORAL [Suspect]
     Active Substance: DEXAMETHASONE
     Indication: PLASMA CELL MYELOMA
     Route: 048
     Dates: start: 20150831, end: 20170303
  2. BUSULFAN. [Suspect]
     Active Substance: BUSULFAN
     Indication: TRANSPLANT
     Route: 065
     Dates: start: 20160728, end: 20160730
  3. VELCADE [Suspect]
     Active Substance: BORTEZOMIB
     Indication: PLASMA CELL MYELOMA
     Route: 058
     Dates: start: 20150831, end: 20170303
  4. MELPHALAN [Suspect]
     Active Substance: MELPHALAN
     Indication: TRANSPLANT
     Route: 065
     Dates: start: 20160731, end: 20160731
  5. REVLIMID [Suspect]
     Active Substance: LENALIDOMIDE
     Indication: PLASMA CELL MYELOMA
     Route: 048
     Dates: start: 20150831, end: 20170307

REACTIONS (1)
  - Respiratory tract infection [Fatal]

NARRATIVE: CASE EVENT DATE: 20170307
